FAERS Safety Report 23979122 (Version 2)
Quarter: 2024Q2

REPORT INFORMATION
  Report Type: Spontaneous
  Country: BR (occurrence: BR)
  Receive Date: 20240615
  Receipt Date: 20240621
  Transmission Date: 20240716
  Serious: Yes (Other)
  Sender: FDA-Public Use
  Company Number: BR-Accord-429379

PATIENT
  Age: 51 Year
  Sex: Female

DRUGS (3)
  1. PACLITAXEL [Suspect]
     Active Substance: PACLITAXEL
     Indication: Breast neoplasm
     Dosage: STRENGTH: 6MG/ML
     Route: 042
     Dates: start: 20240406
  2. CARBOPLATIN [Concomitant]
     Active Substance: CARBOPLATIN
  3. MORPHINE [Concomitant]
     Active Substance: MORPHINE

REACTIONS (2)
  - Hyperaemia [Recovered/Resolved]
  - Dyspnoea [Recovered/Resolved]

NARRATIVE: CASE EVENT DATE: 20240406
